FAERS Safety Report 8954829 (Version 2)
Quarter: 2013Q1

REPORT INFORMATION
  Report Type: Spontaneous
  Country: US (occurrence: US)
  Receive Date: 20121210
  Receipt Date: 20130226
  Transmission Date: 20140127
  Serious: Yes (Other)
  Sender: FDA-Public Use
  Company Number: US-SANOFI-AVENTIS-2012SA088733

PATIENT
  Age: 60 Year
  Sex: Female

DRUGS (5)
  1. LANTUS SOLOSTAR [Suspect]
     Indication: TYPE 2 DIABETES MELLITUS
     Dosage: DOSE:40 UNIT(S)
     Route: 058
     Dates: start: 201208
  2. SOLOSTAR [Suspect]
     Indication: TYPE 2 DIABETES MELLITUS
     Dates: start: 201208
  3. LANTUS [Suspect]
  4. PREDNISONE [Concomitant]
     Indication: RASH
     Dates: start: 2012
  5. PREDNISONE [Concomitant]
     Indication: SKIN DISORDER
     Dates: start: 2012

REACTIONS (4)
  - Cardiac failure congestive [Not Recovered/Not Resolved]
  - Oedema peripheral [Not Recovered/Not Resolved]
  - Rash [Unknown]
  - Blood glucose increased [Not Recovered/Not Resolved]
